FAERS Safety Report 13073154 (Version 1)
Quarter: 2016Q4

REPORT INFORMATION
  Report Type: Spontaneous
  Country: US (occurrence: US)
  Receive Date: 20161229
  Receipt Date: 20161229
  Transmission Date: 20170207
  Serious: Yes (Other)
  Sender: FDA-Public Use
  Company Number: US-009507513-1612USA010804

PATIENT
  Age: 76 Year
  Sex: Female
  Weight: 45.35 kg

DRUGS (2)
  1. PRINIVIL [Suspect]
     Active Substance: LISINOPRIL
     Indication: BLOOD PRESSURE ABNORMAL
     Dosage: 20 MG A DAY
     Route: 048
     Dates: end: 2016
  2. PREMARIN [Suspect]
     Active Substance: ESTROGENS, CONJUGATED
     Indication: HOT FLUSH
     Dosage: 0.9 ^MG^ TABLET, ONCE A DAY
     Route: 048
     Dates: start: 1991

REACTIONS (7)
  - Intestinal obstruction [Unknown]
  - Menstrual disorder [Unknown]
  - Uterine cervical laceration [Unknown]
  - Hot flush [Not Recovered/Not Resolved]
  - Hysterectomy [Unknown]
  - Abdominal adhesions [Unknown]
  - Angioedema [Unknown]

NARRATIVE: CASE EVENT DATE: 201603
